FAERS Safety Report 3713776 (Version 2)
Quarter: 2020Q3

REPORT INFORMATION
  Report Type: Report from Study
  Country: BE (occurrence: BE)
  Receive Date: 20010925
  Receipt Date: 20040825
  Transmission Date: 20201105
  Serious: Yes (Hospitalization)
  Sender: FDA-Public Use
  Company Number: EMADSS2001005432

PATIENT
  Age: 59 Year
  Sex: Male
  Weight: 89.6 kg

DRUGS (4)
  1. ASAFLOW [Concomitant]
     Indication: PROPHYLAXIS
     Route: 049
     Dates: start: 1995
  2. TOPIRAMATE. [Suspect]
     Active Substance: TOPIRAMATE
     Route: 049
     Dates: start: 20001228, end: 20010905
  3. TOPIRAMATE. [Suspect]
     Active Substance: TOPIRAMATE
     Indication: OBESITY
     Route: 049
     Dates: start: 20001228, end: 20010905
  4. COLCHICINE. [Concomitant]
     Active Substance: COLCHICINE
     Indication: ARTHRITIS
     Route: 049
     Dates: start: 1999

REACTIONS (4)
  - Ankle fracture [None]
  - Fall [Recovered/Resolved]
  - Muscular weakness [None]
  - Balance disorder [None]

NARRATIVE: CASE EVENT DATE: 20010905
